FAERS Safety Report 22944405 (Version 2)
Quarter: 2024Q3

REPORT INFORMATION
  Report Type: Spontaneous
  Country: ES (occurrence: ES)
  Receive Date: 20230914
  Receipt Date: 20240917
  Transmission Date: 20241016
  Serious: Yes (Other)
  Sender: RANBAXY
  Company Number: ES-SUN PHARMACEUTICAL INDUSTRIES LTD-2023R1-408044

PATIENT
  Age: 13 Year
  Sex: Female

DRUGS (3)
  1. BICALUTAMIDE [Suspect]
     Active Substance: BICALUTAMIDE
     Indication: Dermatitis atopic
     Dosage: UNK
     Route: 065
  2. TACROLIMUS [Suspect]
     Active Substance: TACROLIMUS
     Indication: Dermatitis atopic
     Dosage: UNK
     Route: 061
  3. estradiol/dienogest [Concomitant]
     Indication: Dermatitis atopic
     Dosage: UNK
     Route: 065

REACTIONS (5)
  - Electrocardiogram QT prolonged [Recovering/Resolving]
  - Torsade de pointes [Recovering/Resolving]
  - Haemodynamic instability [Recovering/Resolving]
  - Respiratory depression [Recovering/Resolving]
  - Loss of consciousness [Recovering/Resolving]
